FAERS Safety Report 18205051 (Version 1)
Quarter: 2020Q3

REPORT INFORMATION
  Report Type: Report from Study
  Country: None (occurrence: US)
  Receive Date: 20200828
  Receipt Date: 20200828
  Transmission Date: 20201103
  Serious: Yes (Death)
  Sender: FDA-Public Use
  Company Number: US-ABBVIE-20K-163-3539113-00

PATIENT
  Sex: Male

DRUGS (31)
  1. ZOFRAN [Concomitant]
     Active Substance: ONDANSETRON HYDROCHLORIDE
     Indication: NAUSEA
     Dosage: DAILY, INFUSE OVER 15 MINS,
     Route: 042
     Dates: start: 20200611, end: 20200618
  2. HYDRALAZINE [Concomitant]
     Active Substance: HYDRALAZINE HYDROCHLORIDE
     Indication: BLOOD PRESSURE MEASUREMENT
     Route: 042
     Dates: start: 20200608
  3. RAMIPRIL. [Concomitant]
     Active Substance: RAMIPRIL
     Indication: PRODUCT USED FOR UNKNOWN INDICATION
     Dosage: DAILY, MAINTENANCE
     Route: 048
  4. NORCO [Concomitant]
     Active Substance: ACETAMINOPHEN\HYDROCODONE BITARTRATE
     Indication: PAIN
     Dosage: 10MG?325MG TABLET?1 TAB Q6H, PRN
     Route: 048
     Dates: start: 20200608, end: 20200618
  5. PROTONIX [Concomitant]
     Active Substance: PANTOPRAZOLE SODIUM
     Indication: PRODUCT USED FOR UNKNOWN INDICATION
     Route: 042
     Dates: start: 20200608
  6. IPRATROPIUM [Concomitant]
     Active Substance: IPRATROPIUM
     Indication: DYSPNOEA
     Dosage: 0.5MG?2.5MG/3ML INHALATION SOLUTION?NEB
     Dates: start: 20200608
  7. ALBUTEROL. [Concomitant]
     Active Substance: ALBUTEROL
     Indication: WHEEZING
  8. COLCHICINE. [Concomitant]
     Active Substance: COLCHICINE
     Indication: GOUT
     Dosage: TAKE WITH PREDNISONE
     Route: 048
  9. GLUCOSE [Concomitant]
     Active Substance: DEXTROSE
     Dosage: PRN
     Route: 048
     Dates: start: 20200608
  10. VIDAZA [Concomitant]
     Active Substance: AZACITIDINE
     Indication: PRODUCT USED FOR UNKNOWN INDICATION
     Dosage: DAILY, INFUSE OVER 30 MINS
     Route: 042
     Dates: start: 20200611, end: 20200618
  11. ZOFRAN [Concomitant]
     Active Substance: ONDANSETRON HYDROCHLORIDE
     Indication: VOMITING
     Dosage: FORM OF ADMIN ?SOLUTION
     Route: 042
     Dates: start: 20200608
  12. IPRATROPIUM [Concomitant]
     Active Substance: IPRATROPIUM
     Indication: WHEEZING
  13. ALBUTEROL. [Concomitant]
     Active Substance: ALBUTEROL
     Indication: DYSPNOEA
     Dosage: 0.5MG?2.5MG/3ML INHALATION SOLUTION?NEB
     Dates: start: 20200608
  14. AMLODIPINE [Concomitant]
     Active Substance: AMLODIPINE BESYLATE
     Indication: PRODUCT USED FOR UNKNOWN INDICATION
     Dosage: MAINTENANCE
     Route: 048
  15. VENCLEXTA [Suspect]
     Active Substance: VENETOCLAX
     Dosage: DAY 1 2 TABLETS
     Route: 048
     Dates: start: 2020, end: 2020
  16. LIDOCAINE. [Concomitant]
     Active Substance: LIDOCAINE
     Indication: PRODUCT USED FOR UNKNOWN INDICATION
     Dosage: 1 APP, AS DIRECTED PRN?FORM OF ADMIN? 2% MUCOUS MEMBRANE SOLUTION
     Route: 061
     Dates: start: 20200608
  17. CHLORASEPTIC CHERRY [Concomitant]
     Indication: OROPHARYNGEAL PAIN
     Dosage: FORM OF ADMIN?1.4% TOPICAL SPRAY?1 SPRAY AS DIRECTED
     Route: 048
     Dates: start: 20200608
  18. DEXTROSE. [Concomitant]
     Active Substance: DEXTROSE
     Indication: BLOOD GLUCOSE
     Dosage: FORM OF ADMIN?50% IN WATER IV SOLUTION
     Route: 042
     Dates: start: 20200608
  19. VENCLEXTA [Suspect]
     Active Substance: VENETOCLAX
     Dosage: DAY 1
     Route: 048
     Dates: start: 2020, end: 2020
  20. VENCLEXTA [Suspect]
     Active Substance: VENETOCLAX
     Dosage: DAY 2, 2 TABS
     Route: 048
     Dates: start: 2020, end: 2020
  21. VENCLEXTA [Suspect]
     Active Substance: VENETOCLAX
     Dosage: 4 TABLETS DAILY
     Route: 048
     Dates: start: 2020, end: 2020
  22. GLUCOSE [Concomitant]
     Active Substance: DEXTROSE
     Indication: BLOOD GLUCOSE
     Dosage: PRN
     Route: 048
     Dates: start: 20200608
  23. SIMVASTATIN. [Concomitant]
     Active Substance: SIMVASTATIN
     Indication: PRODUCT USED FOR UNKNOWN INDICATION
     Dosage: HS, MAINTENANCE
     Route: 048
  24. VENCLEXTA [Suspect]
     Active Substance: VENETOCLAX
     Dosage: 8 TABS DAILY
     Route: 048
     Dates: start: 2020, end: 2020
  25. DECADRON [Concomitant]
     Active Substance: DEXAMETHASONE
     Indication: PRODUCT USED FOR UNKNOWN INDICATION
     Dosage: INFUSE OVER 15 MINS, DAILY
     Route: 042
     Dates: start: 20200611, end: 20200618
  26. GLUCAGON. [Concomitant]
     Active Substance: GLUCAGON
     Indication: BLOOD GLUCOSE
     Dosage: FORM OF ADMIN? SOLUTION, IN PRN
     Route: 030
     Dates: start: 20200608
  27. TRAMADOL. [Concomitant]
     Active Substance: TRAMADOL
     Indication: PAIN
     Dosage: MAY CAUSE DROWSINESS
     Route: 048
  28. VENCLEXTA [Suspect]
     Active Substance: VENETOCLAX
     Indication: ACUTE MYELOMONOCYTIC LEUKAEMIA
     Route: 048
     Dates: start: 202007, end: 2020
  29. VENCLEXTA [Suspect]
     Active Substance: VENETOCLAX
     Dosage: 4 TABS DAY 2
     Route: 048
     Dates: start: 2020, end: 2020
  30. NICOTINE PATCH REMOVAL [Concomitant]
     Indication: PRODUCT USED FOR UNKNOWN INDICATION
     Dosage: FORM OF ADMIN?PATCH?1 PATCH, TD, HS
     Dates: start: 20200608
  31. ZOSYN [Concomitant]
     Active Substance: PIPERACILLIN SODIUM\TAZOBACTAM SODIUM
     Indication: INFECTION
     Route: 042
     Dates: start: 20200608, end: 20200618

REACTIONS (1)
  - Death [Fatal]

NARRATIVE: CASE EVENT DATE: 2020
